FAERS Safety Report 7277878-X (Version None)
Quarter: 2011Q1

REPORT INFORMATION
  Report Type: 
  Country: None (occurrence: None)
  Receive Date: 20110207
  Receipt Date: 20110202
  Transmission Date: 20110831
  Serious: Yes (Death, Life-Threatening)
  Sender: FDA-Public Use
  Company Number: FR-ASTRAZENECA-2011SE05892

PATIENT
  Sex: Male
  Weight: 3 kg

DRUGS (9)
  1. TRACRIUM [Interacting]
     Indication: GENERAL ANAESTHESIA
     Dosage: 25 MG/2.5 ML
     Route: 064
     Dates: start: 20100915
  2. EPHEDRINE [Interacting]
     Indication: GENERAL ANAESTHESIA
     Route: 064
     Dates: start: 20100915, end: 20100915
  3. NAROPIN [Interacting]
     Dosage: 7.5 MG/ML, 20 ML
     Route: 064
     Dates: start: 20100915, end: 20100915
  4. SUFENTA PRESERVATIVE FREE [Interacting]
     Dosage: 10 ?G/2 ML
     Route: 064
     Dates: start: 20100915, end: 20100915
  5. SUCCINYLCHOLINE CHLORIDE [Interacting]
     Indication: ANAESTHESIA
     Route: 064
     Dates: start: 20100915
  6. XYLOCAINE [Suspect]
     Dosage: 2%
     Route: 064
     Dates: start: 20100915, end: 20100915
  7. DIPRIVAN [Interacting]
     Indication: INDUCTION OF ANAESTHESIA
     Route: 064
     Dates: start: 20100915
  8. AVLOCARDYL [Interacting]
     Indication: HYPERTENSION
     Route: 064
     Dates: end: 20100915
  9. LOXEN [Interacting]
     Indication: HYPERTENSION
     Route: 064
     Dates: end: 20100915

REACTIONS (3)
  - APPARENT DEATH [None]
  - CIRCULATORY FAILURE NEONATAL [None]
  - DRUG INTERACTION [None]
